FAERS Safety Report 11328730 (Version 1)
Quarter: 2015Q3

REPORT INFORMATION
  Report Type: Spontaneous
  Country: US (occurrence: US)
  Receive Date: 20150731
  Receipt Date: 20150731
  Transmission Date: 20151125
  Serious: No
  Sender: FDA-Public Use
  Company Number: US-BAXTER-2015BAX040853

PATIENT
  Age: 3 Year
  Sex: Male
  Weight: 14.53 kg

DRUGS (8)
  1. TRAVASOL [Suspect]
     Active Substance: ALANINE\ARGININE\GLYCINE\HISTIDINE\ISOLEUCINE\LEUCINE\LYSINE HYDROCHLORIDE\METHIONINE\PHENYLALANINE\PROLINE\SERINE\THREONINE\TRYPTOPHAN\TYROSINE\VALINE
     Indication: NUTRITIONAL SUPPLEMENTATION
     Route: 065
     Dates: start: 20150625
  2. CALCIUM GLUCONATE. [Suspect]
     Active Substance: CALCIUM GLUCONATE
     Indication: NUTRITIONAL SUPPLEMENTATION
     Dosage: 0.465 MEQ/ML
     Route: 065
     Dates: start: 20150625
  3. SODIUM ACETATE. [Suspect]
     Active Substance: SODIUM ACETATE
     Indication: NUTRITIONAL SUPPLEMENTATION
     Dosage: 2 MEQ/ML
     Route: 065
     Dates: start: 20150625
  4. 70% DEXTROSE INJECTION, USP [Suspect]
     Active Substance: DEXTROSE
     Indication: NUTRITIONAL SUPPLEMENTATION
     Route: 065
     Dates: start: 20150625
  5. POTASSIUM CHLORIDE. [Suspect]
     Active Substance: POTASSIUM CHLORIDE
     Indication: NUTRITIONAL SUPPLEMENTATION
     Dosage: 2 MEQ/ML
     Route: 065
     Dates: start: 20150625
  6. STERILE WATER FOR INJECTION [Suspect]
     Active Substance: WATER
     Indication: NUTRITIONAL SUPPLEMENTATION
     Route: 065
     Dates: start: 20150625
  7. MAGNESIUM SULFATE. [Suspect]
     Active Substance: MAGNESIUM SULFATE
     Indication: NUTRITIONAL SUPPLEMENTATION
     Dosage: 4 MEQ/ML
     Route: 065
     Dates: start: 20150625
  8. POTASSIUM PHOSPHATE [Suspect]
     Active Substance: POTASSIUM PHOSPHATE
     Indication: NUTRITIONAL SUPPLEMENTATION
     Dosage: 3 MM/ML
     Route: 065
     Dates: start: 20150625

REACTIONS (3)
  - Underdose [Unknown]
  - No adverse event [Recovered/Resolved]
  - Product compounding quality issue [Unknown]

NARRATIVE: CASE EVENT DATE: 20150625
